FAERS Safety Report 12237471 (Version 1)
Quarter: 2016Q2

REPORT INFORMATION
  Report Type: Spontaneous
  Country: CN (occurrence: CN)
  Receive Date: 20160405
  Receipt Date: 20160405
  Transmission Date: 20160815
  Serious: Yes (Other)
  Sender: FDA-Public Use
  Company Number: CN-BAXTER-2016BAX016808

PATIENT
  Sex: Female
  Weight: 72.5 kg

DRUGS (14)
  1. 0.9% SODIUM CHLORIDE INJECTION [Suspect]
     Active Substance: SODIUM CHLORIDE
     Indication: MEDICATION DILUTION
     Dosage: SOLVENT FOR CYCLOPHOSPHAMIDE
     Route: 041
     Dates: start: 20150824, end: 20150824
  2. 0.9% SODIUM CHLORIDE INJECTION [Suspect]
     Active Substance: SODIUM CHLORIDE
     Dosage: SOLVENT FOR CYCLOPHOSPHAMIDE
     Route: 041
  3. CYCLOPHOSPHAMIDE. [Suspect]
     Active Substance: CYCLOPHOSPHAMIDE
     Indication: BREAST CANCER IN SITU
     Route: 041
  4. 0.9% SODIUM CHLORIDE INJECTION [Suspect]
     Active Substance: SODIUM CHLORIDE
     Dosage: SOLVENT FOR EPIRUBICIN HYDROCHLORIDE
     Route: 041
  5. CYCLOPHOSPHAMIDE. [Suspect]
     Active Substance: CYCLOPHOSPHAMIDE
     Indication: BREAST CANCER RECURRENT
     Route: 041
     Dates: start: 20150824, end: 20150824
  6. DIPHENHYDRAMINE HYDROCHLORIDE. [Suspect]
     Active Substance: DIPHENHYDRAMINE HYDROCHLORIDE
     Indication: BREAST CANCER RECURRENT
     Route: 030
     Dates: start: 20150824, end: 20150824
  7. LOSEC [Suspect]
     Active Substance: OMEPRAZOLE
     Indication: BREAST CANCER RECURRENT
     Route: 041
     Dates: start: 20150824, end: 20150824
  8. DIPHENHYDRAMINE HYDROCHLORIDE. [Suspect]
     Active Substance: DIPHENHYDRAMINE HYDROCHLORIDE
     Indication: BREAST CANCER IN SITU
     Route: 030
  9. PHARMORUBICIN [Suspect]
     Active Substance: EPIRUBICIN
     Indication: BREAST CANCER IN SITU
     Route: 041
  10. 0.9% SODIUM CHLORIDE INJECTION [Suspect]
     Active Substance: SODIUM CHLORIDE
     Dosage: SOLVENT FOR PHARMORUBICIN
     Route: 041
     Dates: start: 20150824, end: 20150824
  11. 0.9% SODIUM CHLORIDE INJECTION [Suspect]
     Active Substance: SODIUM CHLORIDE
     Dosage: SOLVENT FOR OMEPRAZOLE SODIUM
     Route: 041
     Dates: start: 20150824, end: 20150824
  12. 0.9% SODIUM CHLORIDE INJECTION [Suspect]
     Active Substance: SODIUM CHLORIDE
     Dosage: SOLVENT FOR OMEPRAZOLE SODIUM
     Route: 041
  13. PHARMORUBICIN [Suspect]
     Active Substance: EPIRUBICIN
     Indication: BREAST CANCER RECURRENT
     Route: 041
     Dates: start: 20150824, end: 20150824
  14. LOSEC [Suspect]
     Active Substance: OMEPRAZOLE
     Indication: BREAST CANCER IN SITU
     Route: 041

REACTIONS (1)
  - Bone marrow failure [Recovering/Resolving]
